FAERS Safety Report 8802188 (Version 1)
Quarter: 2012Q4

REPORT INFORMATION
  Report Type: 
  Country: US (occurrence: US)
  Receive Date: 20120921
  Receipt Date: 20120921
  Transmission Date: 20130627
  Serious: No
  Sender: FDA-Public Use
  Company Number: US-009507513-1209USA004452

PATIENT
  Age: 40 None
  Sex: Male

DRUGS (2)
  1. PEGINTRON [Suspect]
     Indication: HEPATITIS C
     Dosage: UNK
     Dates: start: 20120907
  2. REBETOL [Suspect]
     Indication: HEPATITIS C
     Dosage: UNK
     Dates: start: 20120907

REACTIONS (8)
  - Angina pectoris [Unknown]
  - Tremor [Unknown]
  - Chills [Unknown]
  - Headache [Unknown]
  - Vomiting [Unknown]
  - Agitation [Unknown]
  - Dizziness [Unknown]
  - Asthenia [Unknown]
